FAERS Safety Report 21572859 (Version 3)
Quarter: 2022Q4

REPORT INFORMATION
  Report Type: Spontaneous
  Country: US (occurrence: US)
  Receive Date: 20221109
  Receipt Date: 20221222
  Transmission Date: 20230113
  Serious: Yes (Other)
  Sender: FDA-Public Use
  Company Number: US-PFIZER INC-PV202200099211

PATIENT
  Age: 73 Year
  Sex: Male

DRUGS (1)
  1. INLYTA [Suspect]
     Active Substance: AXITINIB
     Dosage: UNK

REACTIONS (7)
  - Diabetic ketoacidosis [Unknown]
  - Blood pressure increased [Recovered/Resolved]
  - Arthritis [Recovered/Resolved]
  - Abdominal discomfort [Recovered/Resolved]
  - Faeces soft [Recovered/Resolved]
  - Myalgia [Recovered/Resolved]
  - Blood glucose increased [Unknown]
